FAERS Safety Report 22626761 (Version 1)
Quarter: 2023Q2

REPORT INFORMATION
  Report Type: Report from Study
  Country: GB (occurrence: GB)
  Receive Date: 20230622
  Receipt Date: 20230622
  Transmission Date: 20230722
  Serious: Yes (Other)
  Sender: FDA-Public Use
  Company Number: GB-CELLTRION INC.-2023GB012515

PATIENT

DRUGS (1)
  1. ADALIMUMAB [Suspect]
     Active Substance: ADALIMUMAB
     Indication: Crohn^s disease
     Dosage: ADDITIONAL INFO: ROUTE:

REACTIONS (5)
  - Eye pain [Recovered/Resolved]
  - Rash erythematous [Recovering/Resolving]
  - Eczema [Recovering/Resolving]
  - Dyspnoea [Recovered/Resolved]
  - Wheezing [Unknown]
